FAERS Safety Report 5702928-9 (Version None)
Quarter: 2008Q2

REPORT INFORMATION
  Report Type: 
  Country: None (occurrence: None)
  Receive Date: 20080411
  Receipt Date: 20080331
  Transmission Date: 20081010
  Serious: Yes (Hospitalization)
  Sender: FDA-Public Use
  Company Number: FR-WYE-H03527208

PATIENT
  Sex: Male

DRUGS (6)
  1. CORDARONE [Suspect]
     Route: 048
  2. ATARAX [Concomitant]
     Dosage: UNSPECIFIED
     Route: 048
  3. TANAKAN [Suspect]
     Route: 048
     Dates: end: 20071231
  4. MEDIATENSYL [Concomitant]
     Dosage: UNSPECIFIED
     Route: 048
  5. PREVISCAN [Suspect]
     Route: 048
     Dates: end: 20071231
  6. ATORVASTATIN CALCIUM [Suspect]
     Route: 048

REACTIONS (2)
  - ANAEMIA [None]
  - MUSCLE HAEMORRHAGE [None]
